FAERS Safety Report 7484735-2 (Version None)
Quarter: 2011Q2

REPORT INFORMATION
  Report Type: 
  Country: None (occurrence: None)
  Receive Date: 20110517
  Receipt Date: 20110513
  Transmission Date: 20111010
  Serious: Yes (Disabling)
  Sender: FDA-Public Use
  Company Number: GB-ROCHE-759546

PATIENT
  Sex: Male
  Weight: 82.7 kg

DRUGS (7)
  1. CAPECITABINE [Suspect]
     Indication: COLORECTAL CANCER
     Dosage: DATE OF MOST RECENT DOSE GIVEN: 28 OCT 2010.  DOSE REDUCTION:25 %. CURRENT CYCLE NUMBER: COMPLETED.
     Route: 048
     Dates: start: 20100430
  2. ACETAMINOPHEN AND CODEINE PHOSPHATE [Concomitant]
     Route: 048
  3. TRAMADOL HYDROCHLORIDE [Concomitant]
     Route: 048
     Dates: start: 20100124
  4. PREDNISOLONE [Concomitant]
     Dosage: REDUCING DOSE 2.5 MG/2 WEEKS
     Route: 048
     Dates: start: 20101029
  5. OMEPRAZOLE [Concomitant]
     Indication: ANTACID THERAPY
     Route: 048
     Dates: start: 20101021
  6. NAPROXEN [Concomitant]
     Route: 048
  7. BEVACIZUMAB [Suspect]
     Indication: COLORECTAL CANCER
     Dosage: DATE OF MOST RECENT DOSE GIVEN: 08 OCT 2010.  CURRENT CYCLE NUMBER: COMPLETED.
     Route: 042
     Dates: start: 20100430

REACTIONS (1)
  - ARTHROPATHY [None]
